FAERS Safety Report 5096960-9 (Version None)
Quarter: 2006Q3

REPORT INFORMATION
  Report Type: 
  Country: None (occurrence: None)
  Receive Date: 20060831
  Receipt Date: 20060815
  Transmission Date: 20061208
  Serious: Yes (Other)
  Sender: FDA-Public Use
  Company Number: TRP_0855_2006

PATIENT
  Age: 54 Year
  Sex: Female
  Weight: 90.7194 kg

DRUGS (14)
  1. RIBASPHERE [Suspect]
     Indication: HEPATITIS C
     Dosage: 600 MG BID PO
     Route: 048
     Dates: start: 20060316
  2. PEG-INTRON [Suspect]
     Indication: HEPATITIS C
     Dosage: 5 ML QWK SC
     Route: 058
     Dates: start: 20060316
  3. CELEBREX [Suspect]
     Indication: FIBROMYALGIA
     Dosage: 200 MG BID PO
     Route: 048
     Dates: end: 20060501
  4. CELEBREX [Suspect]
     Indication: MYALGIA
     Dosage: 200 MG BID PO
     Route: 048
     Dates: end: 20060501
  5. MOTRIN [Suspect]
     Indication: FIBROMYALGIA
     Dosage: 200 MG BID PO
     Route: 048
     Dates: start: 20060601, end: 20060601
  6. MOTRIN [Suspect]
     Indication: MYALGIA
     Dosage: 200 MG BID PO
     Route: 048
     Dates: start: 20060601, end: 20060601
  7. BENADRYL [Concomitant]
     Indication: FIBROMYALGIA
  8. EFFEXOR XR [Concomitant]
     Indication: ARTHRALGIA
  9. EFFEXOR XR [Concomitant]
     Indication: MYALGIA
  10. GLUCOSAMINE/CHONDROITIN [Concomitant]
     Indication: ARTHRALGIA
  11. GLUCOSAMINE/CHONDROITIN [Concomitant]
     Indication: MYALGIA
  12. MULTIVITAMIN [Concomitant]
  13. CALCIUM GLUCONATE [Concomitant]
  14. TYLENOL EXTRA-STRENGTH [Concomitant]

REACTIONS (5)
  - ALOPECIA [None]
  - DRUG HYPERSENSITIVITY [None]
  - DRY SKIN [None]
  - FATIGUE [None]
  - MUSCLE SPASMS [None]
